FAERS Safety Report 9023496 (Version 1)
Quarter: 2013Q1

REPORT INFORMATION
  Report Type: Spontaneous
  Country: JP (occurrence: JP)
  Receive Date: 20130121
  Receipt Date: 20130121
  Transmission Date: 20140127
  Serious: Yes (Death)
  Sender: FDA-Public Use
  Company Number: JP-GE HEALTHCARE MEDICAL DIAGNOSTICS-OMPQ-NO-0902S-0107

PATIENT
  Age: 16 None
  Sex: Male

DRUGS (3)
  1. OMNIPAQUE [Suspect]
     Indication: THROMBOANGIITIS OBLITERANS
     Route: 013
     Dates: start: 20090212, end: 20090212
  2. OMNIPAQUE [Suspect]
     Indication: DIAGNOSTIC PROCEDURE
  3. PREDNISOLONE (PREDONINE) [Concomitant]

REACTIONS (10)
  - Anaphylactic shock [Fatal]
  - Urticaria [Fatal]
  - Headache [Fatal]
  - Vomiting [Fatal]
  - Respiratory alkalosis [Fatal]
  - Hyperventilation [Fatal]
  - Loss of consciousness [Fatal]
  - Circulatory collapse [Fatal]
  - Brain oedema [Fatal]
  - Pulmonary congestion [Fatal]
